FAERS Safety Report 4893028-9 (Version None)
Quarter: 2005Q4

REPORT INFORMATION
  Report Type: 
  Country: None (occurrence: None)
  Receive Date: 20051223
  Receipt Date: 20041103
  Transmission Date: 20060501
  Serious: Yes (Hospitalization)
  Sender: FDA-Public Use
  Company Number: PHEH2004US11894

PATIENT
  Age: 42 Year
  Sex: Male

DRUGS (9)
  1. CLOZARIL [Suspect]
     Dosage: 300MG BID + 75MG QHS, ORAL
     Route: 048
     Dates: end: 20041031
  2. CLOZARIL [Suspect]
     Dosage: 300MG BID + 75MG QHS, ORAL
     Route: 048
     Dates: start: 20041104
  3. PREVACID [Concomitant]
  4. SEROQUEL [Concomitant]
  5. ZETIA [Concomitant]
  6. LEXAPRO [Concomitant]
  7. TRAZODONE HCL [Concomitant]
  8. DEPAKOTE [Concomitant]
  9. ALTERNAGEL (ALUMINIUM HYDROXIDE GEL, DRIED) [Concomitant]

REACTIONS (2)
  - AGITATION [None]
  - LEUKOCYTOSIS [None]
